FAERS Safety Report 16259868 (Version 2)
Quarter: 2019Q2

REPORT INFORMATION
  Report Type: Report from Study
  Country: GB (occurrence: GB)
  Receive Date: 20190501
  Receipt Date: 20190507
  Transmission Date: 20190711
  Serious: Yes (Hospitalization)
  Sender: FDA-Public Use
  Company Number: GB-ROCHE-2308944

PATIENT
  Age: 80 Year
  Sex: Female
  Weight: 65.45 kg

DRUGS (8)
  1. ATORVASTATIN [Concomitant]
     Active Substance: ATORVASTATIN
     Indication: BLOOD CHOLESTEROL INCREASED
     Route: 048
     Dates: start: 20190318
  2. AMLODIPINE [Concomitant]
     Active Substance: AMLODIPINE BESYLATE
     Indication: HYPERTENSION
     Route: 048
     Dates: start: 20190122
  3. OMEPRAZOLE. [Concomitant]
     Active Substance: OMEPRAZOLE
     Indication: GASTROINTESTINAL HAEMORRHAGE
     Route: 048
     Dates: start: 201801
  4. ATEZOLIZUMAB. [Suspect]
     Active Substance: ATEZOLIZUMAB
     Indication: FEMALE REPRODUCTIVE NEOPLASM
     Dosage: ATEZOLIZUMAB 1200 MG (EQUIVALENT TO AN AVERAGE BODY WEIGHT-BASED DOSE OF 15 MILLIGRAMS PER KILOGRAM
     Route: 042
     Dates: start: 20190311
  5. STEMETIL [PROCHLORPERAZINE] [Concomitant]
     Indication: NAUSEA
     Route: 048
     Dates: start: 20190331
  6. RUCAPARIB [Suspect]
     Active Substance: RUCAPARIB
     Indication: FEMALE REPRODUCTIVE NEOPLASM
     Dosage: THE STARTING DOSAGE LEVEL OF RUCAPARIB FOR PART 1 IS 400 MG ORAL BID DURING A 21-DAY TREATMENT CYCLE
     Route: 048
     Dates: start: 20190218
  7. CLOPIDOGREL [Concomitant]
     Active Substance: CLOPIDOGREL BISULFATE
     Indication: DIZZINESS
     Route: 048
     Dates: start: 20190307
  8. COCODAMOL [Concomitant]
     Active Substance: ACETAMINOPHEN\CODEINE PHOSPHATE
     Indication: ABDOMINAL DISCOMFORT
     Route: 048

REACTIONS (1)
  - Neutropenic sepsis [Not Recovered/Not Resolved]

NARRATIVE: CASE EVENT DATE: 20190421
